FAERS Safety Report 25594931 (Version 1)
Quarter: 2025Q3

REPORT INFORMATION
  Report Type: Spontaneous
  Country: EU (occurrence: EU)
  Receive Date: 20250723
  Receipt Date: 20250723
  Transmission Date: 20251020
  Serious: Yes (Hospitalization, Other)
  Sender: AUROBINDO
  Company Number: EU-LRB-01072291

PATIENT
  Age: 67 Year
  Sex: Female
  Weight: 87.9 kg

DRUGS (2)
  1. PREDNISOLONE [Suspect]
     Active Substance: PREDNISOLONE
     Indication: Rheumatoid arthritis
     Dosage: 5 MILLIGRAM, ONCE A DAY (1 PIECE ONCE A DAY)
     Route: 048
     Dates: start: 20250407, end: 20250618
  2. METHOTREXATE [Suspect]
     Active Substance: METHOTREXATE
     Indication: Rheumatoid arthritis
     Dosage: 25 MILLIGRAM, EVERY WEEK (25 MG, 1 X PER WEEK 10 PIECES)
     Route: 048
     Dates: start: 20250407, end: 20250629

REACTIONS (2)
  - Pneumocystis jirovecii pneumonia [Recovering/Resolving]
  - Rash papular [Recovering/Resolving]
